FAERS Safety Report 8827661 (Version 2)
Quarter: 2012Q4

REPORT INFORMATION
  Report Type: 
  Country: FR (occurrence: FR)
  Receive Date: 20121005
  Receipt Date: 20121102
  Transmission Date: 20130627
  Serious: Yes (Hospitalization, Other)
  Sender: FDA-Public Use
  Company Number: FR-ABBOTT-12P-056-0989010-00

PATIENT
  Age: 68 Year
  Sex: Male

DRUGS (2)
  1. HUMIRA [Suspect]
     Indication: PSORIASIS
     Route: 058
     Dates: start: 20120330, end: 20120710
  2. HUMIRA [Suspect]
     Indication: MUSCULOSKELETAL PAIN

REACTIONS (6)
  - Diabetes mellitus [Recovering/Resolving]
  - Neoplasm malignant [Not Recovered/Not Resolved]
  - Non-Hodgkin^s lymphoma [Unknown]
  - Arthritis [Recovering/Resolving]
  - Arthralgia [Recovering/Resolving]
  - Skin lesion [Recovering/Resolving]
